FAERS Safety Report 21904849 (Version 2)
Quarter: 2023Q1

REPORT INFORMATION
  Report Type: Spontaneous
  Country: IR (occurrence: IR)
  Receive Date: 20230124
  Receipt Date: 20230301
  Transmission Date: 20230417
  Serious: Yes (Death, Other)
  Sender: FDA-Public Use
  Company Number: IR-SA-2023SA025015

PATIENT
  Sex: Female

DRUGS (1)
  1. ALDURAZYME [Suspect]
     Active Substance: LARONIDASE
     Indication: Mucopolysaccharidosis I
     Dosage: 3 VIALS WEEKLY

REACTIONS (1)
  - Influenza [Fatal]
